FAERS Safety Report 6647016-2 (Version None)
Quarter: 2010Q1

REPORT INFORMATION
  Report Type: 
  Country: None (occurrence: None)
  Receive Date: 20100323
  Receipt Date: 20100108
  Transmission Date: 20100710
  Serious: No
  Sender: FDA-Public Use
  Company Number: A0838626A

PATIENT
  Age: 26 Year
  Sex: Male

DRUGS (2)
  1. LAMICTAL XR [Suspect]
     Dosage: 200MG UNKNOWN
     Route: 048
     Dates: start: 20091201
  2. PHENOBARBITAL TAB [Concomitant]

REACTIONS (1)
  - PARAESTHESIA [None]
